FAERS Safety Report 11277989 (Version 1)
Quarter: 2015Q3

REPORT INFORMATION
  Report Type: Report from Study
  Country: EC (occurrence: EC)
  Receive Date: 20150717
  Receipt Date: 20150717
  Transmission Date: 20151125
  Serious: Yes (Hospitalization)
  Sender: FDA-Public Use
  Company Number: EC-ROCHE-1609562

PATIENT
  Sex: Female

DRUGS (1)
  1. AVASTIN [Suspect]
     Active Substance: BEVACIZUMAB
     Indication: VULVAL CANCER
     Route: 042
     Dates: start: 20140811

REACTIONS (3)
  - Dysphagia [Unknown]
  - Pallor [Unknown]
  - Dyspnoea [Unknown]
